FAERS Safety Report 9798721 (Version 1)
Quarter: 2014Q1

REPORT INFORMATION
  Report Type: Spontaneous
  Country: US (occurrence: US)
  Receive Date: 20140106
  Receipt Date: 20140106
  Transmission Date: 20141002
  Serious: No
  Sender: FDA-Public Use
  Company Number: US-GILEAD-2010-0029958

PATIENT
  Age: 63 Year
  Sex: Female
  Weight: 89.81 kg

DRUGS (16)
  1. LETAIRIS [Suspect]
     Indication: PULMONARY ARTERIAL HYPERTENSION
     Route: 048
     Dates: start: 20100202
  2. FLEXERIL [Concomitant]
  3. TYLENOL W/CODEINE [Concomitant]
  4. ACIDOPHILUS [Concomitant]
  5. DARVOCET N [Concomitant]
  6. PLAQUENIL [Concomitant]
  7. LISINOPRIL-HCTZ [Concomitant]
  8. TRIMETHOPRIM [Concomitant]
  9. CITALOPRAM [Concomitant]
  10. PRAVASTATIN [Concomitant]
  11. GLIMEPIRIDE [Concomitant]
  12. LEVEMIR [Concomitant]
  13. KLOR-CON [Concomitant]
  14. OMEPRAZOLE [Concomitant]
  15. CARVEDILOL [Concomitant]
  16. ASPIRIN [Concomitant]

REACTIONS (1)
  - Local swelling [Unknown]
